FAERS Safety Report 7005754-6 (Version None)
Quarter: 2010Q3

REPORT INFORMATION
  Report Type: 
  Country: None (occurrence: None)
  Receive Date: 20100921
  Receipt Date: 20100909
  Transmission Date: 20110219
  Serious: Yes (Hospitalization, Other)
  Sender: FDA-Public Use
  Company Number: US-ELI_LILLY_AND_COMPANY-US201002005580

PATIENT
  Sex: Female

DRUGS (11)
  1. FORTEO [Suspect]
     Indication: OSTEOPOROSIS
     Dosage: 20 UG, DAILY (1/D)
     Dates: start: 20091113
  2. XOPENEX [Concomitant]
     Dosage: 4 D/F, AS NEEDED
  3. IPRAVENT [Concomitant]
     Dosage: 4 D/F, AS NEEDED
  4. MULTI-VITAMIN [Concomitant]
  5. CALCIUM [Concomitant]
  6. ALBUTEROL [Concomitant]
  7. OXYGEN [Concomitant]
  8. PRAVASTATIN [Concomitant]
  9. SODIUM CITRATE [Concomitant]
  10. TRAVATAN [Concomitant]
     Route: 047
  11. CENTRUM SILVER [Concomitant]

REACTIONS (8)
  - CHRONIC OBSTRUCTIVE PULMONARY DISEASE [None]
  - DIZZINESS [None]
  - FALL [None]
  - FEELING ABNORMAL [None]
  - GAIT DISTURBANCE [None]
  - LOSS OF CONSCIOUSNESS [None]
  - SUPRAVENTRICULAR TACHYCARDIA [None]
  - VISUAL IMPAIRMENT [None]
